FAERS Safety Report 18614560 (Version 2)
Quarter: 2021Q3

REPORT INFORMATION
  Report Type: Report from Study
  Country: AU (occurrence: AU)
  Receive Date: 20201215
  Receipt Date: 20210831
  Transmission Date: 20211014
  Serious: Yes (Other)
  Sender: FDA-Public Use
  Company Number: NVSC2020AU316188

PATIENT
  Age: 65 Year
  Sex: Female

DRUGS (2)
  1. ALPELISIB [Suspect]
     Active Substance: ALPELISIB
     Indication: HER2 NEGATIVE BREAST CANCER
     Dosage: 300 MG
     Route: 048
     Dates: start: 20201106, end: 20201125
  2. FULVESTRANT. [Suspect]
     Active Substance: FULVESTRANT
     Indication: HER2 NEGATIVE BREAST CANCER
     Dosage: UNK
     Route: 042
     Dates: start: 20201106

REACTIONS (1)
  - Accidental overdose [Recovered/Resolved]

NARRATIVE: CASE EVENT DATE: 20201125
